FAERS Safety Report 8584902-0 (Version None)
Quarter: 2012Q3

REPORT INFORMATION
  Report Type: 
  Country: None (occurrence: None)
  Receive Date: 20120810
  Receipt Date: 20120808
  Transmission Date: 20120928
  Serious: No
  Sender: FDA-Public Use
  Company Number: US-PFIZER INC-2012194364

PATIENT

DRUGS (1)
  1. PRISTIQ [Suspect]
     Dosage: UNK

REACTIONS (10)
  - PALPITATIONS [None]
  - HYPOAESTHESIA [None]
  - FEAR [None]
  - DEPRESSION [None]
  - CRYING [None]
  - HYPERHIDROSIS [None]
  - HEADACHE [None]
  - MALAISE [None]
  - PANIC ATTACK [None]
  - EMOTIONAL DISORDER [None]
